FAERS Safety Report 10081615 (Version 1)
Quarter: 2014Q2

REPORT INFORMATION
  Report Type: Spontaneous
  Country: JP (occurrence: JP)
  Receive Date: 20140416
  Receipt Date: 20140416
  Transmission Date: 20141212
  Serious: Yes (Other)
  Sender: FDA-Public Use
  Company Number: JP-PFIZER INC-2014101492

PATIENT
  Age: 31 Year
  Sex: Female

DRUGS (1)
  1. VIBRAMYCIN [Suspect]
     Dosage: UNK
     Route: 048
     Dates: start: 201306, end: 201306

REACTIONS (1)
  - Oculomucocutaneous syndrome [Unknown]
